FAERS Safety Report 11948335 (Version 1)
Quarter: 2016Q1

REPORT INFORMATION
  Report Type: Spontaneous
  Country: US (occurrence: None)
  Receive Date: 20160121
  Receipt Date: 20160121
  Transmission Date: 20160526
  Serious: Yes (Other)
  Sender: FDA-Public Use
  Company Number: None

PATIENT
  Age: 63 Year
  Sex: Male
  Weight: 90.7 kg

DRUGS (1)
  1. LEDIPASVIR/SOFOSBUVIR [Suspect]
     Active Substance: LEDIPASVIR\SOFOSBUVIR
     Indication: HEPATITIS C
     Route: 048
     Dates: start: 20151021, end: 20151024

REACTIONS (8)
  - Tremor [None]
  - Confusional state [None]
  - Nausea [None]
  - Chills [None]
  - Drug withdrawal syndrome [None]
  - Vomiting [None]
  - Hyperhidrosis [None]
  - Suicidal ideation [None]
